FAERS Safety Report 19592497 (Version 1)
Quarter: 2021Q3

REPORT INFORMATION
  Report Type: Other
  Country: US (occurrence: US)
  Receive Date: 20210722
  Receipt Date: 20210722
  Transmission Date: 20211014
  Serious: Yes (Other)
  Sender: FDA-Public Use
  Company Number: US-CHEMI SPA-2114136

PATIENT
  Age: 10 Year
  Sex: Female

DRUGS (6)
  1. VINORELBINE [Concomitant]
     Active Substance: VINORELBINE TARTRATE
  2. THIOTEPA. [Concomitant]
     Active Substance: THIOTEPA
  3. CLOFARABINE. [Concomitant]
     Active Substance: CLOFARABINE
  4. DECITABINE. [Suspect]
     Active Substance: DECITABINE
  5. TOPOTECAN [Concomitant]
     Active Substance: TOPOTECAN HYDROCHLORIDE
  6. GEMTUZUMAB OZOGAMICIN [Concomitant]
     Active Substance: GEMTUZUMAB OZOGAMICIN

REACTIONS (1)
  - Drug ineffective [Unknown]
